FAERS Safety Report 5789330-9 (Version None)
Quarter: 2008Q2

REPORT INFORMATION
  Report Type: 
  Country: None (occurrence: None)
  Receive Date: 20080626
  Receipt Date: 20080612
  Transmission Date: 20081010
  Serious: Yes (Hospitalization)
  Sender: FDA-Public Use
  Company Number: NO-MERCK-01037003

PATIENT
  Age: 19 Year
  Sex: Female

DRUGS (8)
  1. SINGULAIR [Suspect]
     Indication: ASTHMA
     Route: 048
     Dates: start: 19990311, end: 19990514
  2. EBASTINE [Concomitant]
     Indication: ASTHMA
     Route: 065
  3. EBASTINE [Concomitant]
     Indication: HYPERSENSITIVITY
     Route: 065
  4. BUDESONIDE [Concomitant]
     Indication: ASTHMA
     Dates: start: 19950101
  5. TERBUTALINE SULFATE [Concomitant]
     Indication: ASTHMA
  6. CITALOPRAM HYDROBROMIDE [Concomitant]
     Indication: DEPRESSION
     Route: 065
  7. BUDESONIDE [Concomitant]
  8. SALMETEROL XINAFOATE [Concomitant]
     Indication: ASTHMA

REACTIONS (13)
  - ALLERGIC GRANULOMATOUS ANGIITIS [None]
  - ARTHRALGIA [None]
  - ARTHRITIS [None]
  - BLOOD IMMUNOGLOBULIN E INCREASED [None]
  - CUTANEOUS VASCULITIS [None]
  - DIARRHOEA HAEMORRHAGIC [None]
  - EOSINOPHILIA [None]
  - LEUKOCYTOSIS [None]
  - MYALGIA [None]
  - NEUROPATHY PERIPHERAL [None]
  - PERICARDITIS [None]
  - VASCULITIS GASTROINTESTINAL [None]
  - VOMITING [None]
